FAERS Safety Report 19318477 (Version 1)
Quarter: 2021Q2

REPORT INFORMATION
  Report Type: Spontaneous
  Country: US (occurrence: US)
  Receive Date: 20210527
  Receipt Date: 20210527
  Transmission Date: 20210717
  Serious: Yes (Death)
  Sender: FDA-Public Use
  Company Number: None

PATIENT
  Sex: Female

DRUGS (2)
  1. LETROZOLE. [Suspect]
     Active Substance: LETROZOLE
     Indication: BREAST CANCER FEMALE
     Route: 048
     Dates: start: 20210105
  2. MULTIVITAMIN, SYNTHROID, LEXAPRO, PROBIOTIC, PLAVIX, PANTOPRAZOLE [Concomitant]

REACTIONS (1)
  - Death [None]
